FAERS Safety Report 7049784-7 (Version None)
Quarter: 2010Q4

REPORT INFORMATION
  Report Type: 
  Country: None (occurrence: None)
  Receive Date: 20101018
  Receipt Date: 20100930
  Transmission Date: 20110411
  Serious: Yes (Other)
  Sender: FDA-Public Use
  Company Number: US-BAYER-200938982NA

PATIENT
  Age: 24 Year
  Sex: Female
  Weight: 113 kg

DRUGS (2)
  1. YASMIN [Suspect]
     Indication: CONTRACEPTION
     Route: 048
     Dates: start: 20030101, end: 20070701
  2. ORAL CONTRACEPTIVES [Concomitant]

REACTIONS (7)
  - ABDOMINAL DISTENSION [None]
  - ABDOMINAL PAIN [None]
  - BILIARY DYSKINESIA [None]
  - CHILLS [None]
  - CHOLECYSTITIS CHRONIC [None]
  - CONSTIPATION [None]
  - PYREXIA [None]
